FAERS Safety Report 16881671 (Version 1)
Quarter: 2019Q4

REPORT INFORMATION
  Report Type: Spontaneous
  Country: US (occurrence: US)
  Receive Date: 20191003
  Receipt Date: 20191003
  Transmission Date: 20200122
  Serious: Yes (Hospitalization, Other)
  Sender: FDA-Public Use
  Company Number: US-ASTRAZENECA-2019SF37300

PATIENT
  Age: 60 Year
  Sex: Female

DRUGS (5)
  1. METOPROLOL. [Suspect]
     Active Substance: METOPROLOL
     Indication: VENTRICULAR EXTRASYSTOLES
     Route: 065
     Dates: start: 2016
  2. ONGLYZA [Suspect]
     Active Substance: SAXAGLIPTIN HYDROCHLORIDE
     Indication: TYPE 2 DIABETES MELLITUS
     Route: 048
     Dates: start: 2009, end: 2012
  3. VERAPAMIL [Concomitant]
     Active Substance: VERAPAMIL HYDROCHLORIDE
     Indication: VENTRICULAR EXTRASYSTOLES
     Dates: start: 2016
  4. METOPROLOL. [Suspect]
     Active Substance: METOPROLOL
     Indication: VENTRICULAR FIBRILLATION
     Route: 065
     Dates: start: 2016
  5. VERAPAMIL [Concomitant]
     Active Substance: VERAPAMIL HYDROCHLORIDE
     Indication: VENTRICULAR FIBRILLATION
     Dates: start: 2016

REACTIONS (15)
  - Fatigue [Unknown]
  - Dizziness [Recovered/Resolved]
  - Ejection fraction decreased [Recovered/Resolved]
  - Ventricular fibrillation [Unknown]
  - Gait disturbance [Unknown]
  - Respiratory tract infection [Recovered/Resolved with Sequelae]
  - Arthropathy [Unknown]
  - Pain [Unknown]
  - Arthralgia [Recovered/Resolved with Sequelae]
  - Oxygen saturation decreased [Unknown]
  - Obstructive airways disorder [Unknown]
  - Fall [Recovered/Resolved with Sequelae]
  - Atrial flutter [Unknown]
  - Ventricular extrasystoles [Unknown]
  - Dyspnoea [Unknown]

NARRATIVE: CASE EVENT DATE: 2009
